FAERS Safety Report 11662070 (Version 1)
Quarter: 2015Q4

REPORT INFORMATION
  Report Type: Spontaneous
  Country: FR (occurrence: FR)
  Receive Date: 20151026
  Receipt Date: 20151026
  Transmission Date: 20160304
  Serious: Yes (Death, Hospitalization)
  Sender: FDA-Public Use
  Company Number: FR-MYLANLABS-2015M1036324

PATIENT

DRUGS (1)
  1. METHOTREXATE [Suspect]
     Active Substance: METHOTREXATE
     Indication: RHEUMATOID ARTHRITIS
     Dosage: 15MG/WEEK
     Route: 065

REACTIONS (5)
  - Interstitial lung disease [Unknown]
  - Multi-organ failure [Fatal]
  - Histoplasmosis disseminated [Fatal]
  - Systemic inflammatory response syndrome [Unknown]
  - Circulatory collapse [Unknown]
